FAERS Safety Report 12579128 (Version 1)
Quarter: 2016Q3

REPORT INFORMATION
  Report Type: Spontaneous
  Country: US (occurrence: US)
  Receive Date: 20160721
  Receipt Date: 20160721
  Transmission Date: 20161109
  Serious: No
  Sender: FDA-Public Use
  Company Number: US-TRIS PHARMA, INC.-1055340

PATIENT
  Age: 61 Year
  Sex: Female
  Weight: 81.63 kg

DRUGS (1)
  1. DEXTROMETHORPHAN POLISTIREX ER OS [Suspect]
     Active Substance: DEXTROMETHORPHAN HYDROBROMIDE
     Route: 048
     Dates: start: 20160111, end: 20160111

REACTIONS (1)
  - Incorrect dose administered [None]

NARRATIVE: CASE EVENT DATE: 20160111
